FAERS Safety Report 20670719 (Version 1)
Quarter: 2022Q2

REPORT INFORMATION
  Report Type: Report from Study
  Country: CN (occurrence: CN)
  Receive Date: 20220404
  Receipt Date: 20220404
  Transmission Date: 20220721
  Serious: Yes (Life-Threatening, Hospitalization, Other)
  Sender: FDA-Public Use
  Company Number: CN-BoehringerIngelheim-2022-BI-162911

PATIENT
  Age: 76 Year
  Sex: Female

DRUGS (2)
  1. DABIGATRAN [Suspect]
     Active Substance: DABIGATRAN
     Indication: Atrial fibrillation
     Route: 048
  2. DABIGATRAN [Suspect]
     Active Substance: DABIGATRAN
     Indication: Cerebrovascular accident prophylaxis

REACTIONS (5)
  - Blood loss anaemia [Unknown]
  - Thrombin time abnormal [Unknown]
  - Metabolic disorder [Unknown]
  - Gastritis erosive [Unknown]
  - Gastric haemorrhage [Unknown]
